FAERS Safety Report 7912486-6 (Version None)
Quarter: 2011Q4

REPORT INFORMATION
  Report Type: 
  Country: None (occurrence: None)
  Receive Date: 20111114
  Receipt Date: 20111103
  Transmission Date: 20120403
  Serious: Yes (Death)
  Sender: FDA-Public Use
  Company Number: US-SANOFI-AVENTIS-2011SA067966

PATIENT
  Age: 63 Year
  Sex: Male
  Weight: 102.5 kg

DRUGS (30)
  1. NITROSTAT [Concomitant]
  2. REGULAR INSULIN [Concomitant]
     Route: 058
  3. BISACODYL [Concomitant]
     Route: 054
  4. LACTOBACILLUS ACIDOPHILUS/LACTOBACILLUS BULGARICUS [Concomitant]
  5. DEXTROSE [Concomitant]
  6. WARFARIN SODIUM [Concomitant]
  7. ZOLPIDEM [Concomitant]
  8. GUAIFENESIN [Concomitant]
     Indication: PULMONARY CONGESTION
  9. POTASSIUM [Concomitant]
  10. MORPHINE SULFATE [Concomitant]
  11. ALBUTEROL [Concomitant]
  12. HEPARIN [Concomitant]
  13. TOPROL-XL [Concomitant]
  14. ALTEPLASE [Concomitant]
  15. ONDANSETRON [Concomitant]
     Indication: NAUSEA
  16. ACETAMINOPHEN [Concomitant]
  17. ACETAMINOPHEN [Concomitant]
     Indication: PAIN
  18. BUDESONIDE W/FORMOTEROL FUMARATE [Concomitant]
  19. FUROSEMIDE [Concomitant]
     Indication: FLUID OVERLOAD
  20. MORPHINE SULFATE [Concomitant]
     Indication: PAIN
  21. PLAVIX [Suspect]
     Route: 048
     Dates: start: 20090331, end: 20110901
  22. DILTIAZEM HCL [Concomitant]
  23. MORPHINE SULFATE [Concomitant]
     Route: 041
  24. ONDANSETRON [Concomitant]
     Indication: VOMITING
  25. LORAZEPAM [Concomitant]
     Indication: ANXIETY
  26. PHENOBARBITAL TAB [Concomitant]
  27. VERSED [Concomitant]
  28. OMEPRAZOLE [Concomitant]
     Dates: end: 20110101
  29. ATROVENT [Concomitant]
     Indication: CARDIOMEGALY
  30. MORPHINE SULFATE [Concomitant]
     Route: 041

REACTIONS (22)
  - PNEUMONIA STAPHYLOCOCCAL [None]
  - DECUBITUS ULCER [None]
  - LIVER FUNCTION TEST ABNORMAL [None]
  - CORONARY ARTERY DISEASE [None]
  - EMPHYSEMA [None]
  - NEOPLASM MALIGNANT [None]
  - PANCYTOPENIA [None]
  - HYPERGLYCAEMIA [None]
  - DEATH [None]
  - ATRIAL FIBRILLATION [None]
  - ASTHMA [None]
  - GASTROINTESTINAL HAEMORRHAGE [None]
  - OBESITY [None]
  - DEEP VEIN THROMBOSIS [None]
  - RESPIRATORY FAILURE [None]
  - LUNG NEOPLASM [None]
  - MONOPLEGIA [None]
  - TRACHEOBRONCHITIS [None]
  - OEDEMA PERIPHERAL [None]
  - VOMITING [None]
  - DIARRHOEA [None]
  - NAUSEA [None]
